FAERS Safety Report 7014402-0 (Version None)
Quarter: 2010Q3

REPORT INFORMATION
  Report Type: 
  Country: None (occurrence: None)
  Receive Date: 20100927
  Receipt Date: 20100913
  Transmission Date: 20110219
  Serious: Yes (Hospitalization, Disabling, Other)
  Sender: FDA-Public Use
  Company Number: US-ELI_LILLY_AND_COMPANY-US201009004211

PATIENT
  Sex: Male

DRUGS (8)
  1. ZYPREXA [Suspect]
     Indication: MAJOR DEPRESSION
     Dosage: 10 MG, UNK
     Dates: start: 20080301
  2. ZYPREXA [Suspect]
     Dosage: 15 MG, UNK
     Dates: end: 20100722
  3. ZYPREXA [Suspect]
     Dosage: 20 MG, UNK
  4. GEODON [Concomitant]
     Dosage: 80 MG, EACH EVENING
  5. ATENOLOL [Concomitant]
  6. LITHIUM CARBONATE [Concomitant]
  7. FLUOXETINE HYDROCHLORIDE [Concomitant]
  8. SIMVASTATIN [Concomitant]

REACTIONS (6)
  - CATATONIA [None]
  - DEPRESSION [None]
  - FEELING ABNORMAL [None]
  - OFF LABEL USE [None]
  - SOMNOLENCE [None]
  - WEIGHT INCREASED [None]
